FAERS Safety Report 11101558 (Version 1)
Quarter: 2015Q2

REPORT INFORMATION
  Report Type: Spontaneous
  Country: FI (occurrence: FI)
  Receive Date: 20150508
  Receipt Date: 20150508
  Transmission Date: 20150821
  Serious: Yes (Hospitalization, Other)
  Sender: FDA-Public Use
  Company Number: FI-BAXTER-2015BAX020391

PATIENT
  Age: 19 Year
  Sex: Male

DRUGS (16)
  1. BICART 720 [Suspect]
     Active Substance: SODIUM BICARBONATE
     Indication: HAEMODIALYSIS
     Route: 010
  2. GLUCAGEN [Concomitant]
     Active Substance: GLUCAGON HYDROCHLORIDE
     Indication: PRODUCT USED FOR UNKNOWN INDICATION
     Dosage: 1 MG WHEN REQUIRED
     Route: 065
  3. PANADOL [Concomitant]
     Active Substance: ACETAMINOPHEN
     Indication: PRODUCT USED FOR UNKNOWN INDICATION
     Route: 065
  4. ASA-RATIOPHARM [Concomitant]
     Indication: PRODUCT USED FOR UNKNOWN INDICATION
     Route: 065
  5. ARANESP [Concomitant]
     Active Substance: DARBEPOETIN ALFA
     Indication: HAEMODIALYSIS
  6. NOVORAPID [Concomitant]
     Active Substance: INSULIN ASPART
     Indication: PRODUCT USED FOR UNKNOWN INDICATION
     Dosage: 1-2 IU/10G HH
     Route: 065
  7. VENOFER [Concomitant]
     Active Substance: IRON SUCROSE
     Indication: HAEMODIALYSIS
  8. AMLODIPINE [Concomitant]
     Active Substance: AMLODIPINE BESYLATE
     Indication: PRODUCT USED FOR UNKNOWN INDICATION
     Route: 065
  9. LEVEMIR [Concomitant]
     Active Substance: INSULIN DETEMIR
     Indication: PRODUCT USED FOR UNKNOWN INDICATION
     Dosage: 100 U/ML WHEN REQUIRED
     Route: 065
  10. ETALPHA [Concomitant]
     Active Substance: ALFACALCIDOL
     Indication: PRODUCT USED FOR UNKNOWN INDICATION
     Route: 065
  11. SORBISTERIT [Concomitant]
     Indication: PRODUCT USED FOR UNKNOWN INDICATION
  12. NATRIUMKLORID BAXTER 9 MG/ML INFUUSIONESTE, LIUOS [Suspect]
     Active Substance: SODIUM CHLORIDE
     Indication: HAEMODIALYSIS
     Route: 010
  13. CALCICHEW D3 FORTE [Concomitant]
     Active Substance: CALCIUM\CHOLECALCIFEROL
     Indication: PRODUCT USED FOR UNKNOWN INDICATION
     Dosage: 500 MG/10 MICOGRAM
     Route: 065
  14. NOVORAPID [Concomitant]
     Active Substance: INSULIN ASPART
     Indication: PRODUCT USED FOR UNKNOWN INDICATION
     Route: 065
  15. RENAVIT VITALINE FORMULAS [Concomitant]
     Indication: PRODUCT USED FOR UNKNOWN INDICATION
     Route: 065
  16. KLEXANE [Concomitant]
     Active Substance: ENOXAPARIN
     Indication: PRODUCT USED FOR UNKNOWN INDICATION
     Dosage: 100 MG/ ML 40 MG
     Route: 042

REACTIONS (15)
  - Confusional state [Unknown]
  - Cardiac arrest [Unknown]
  - Hypoglycaemia [Unknown]
  - Seizure [Unknown]
  - Therapy cessation [Unknown]
  - Retching [Unknown]
  - Vomiting [Unknown]
  - Altered state of consciousness [Unknown]
  - Pyrexia [Unknown]
  - Ventricular fibrillation [Unknown]
  - Hypertension [Unknown]
  - Haemorrhage [Unknown]
  - Restlessness [Unknown]
  - Head injury [Unknown]
  - Speech disorder [Unknown]

NARRATIVE: CASE EVENT DATE: 20150401
